FAERS Safety Report 11597500 (Version 1)
Quarter: 2015Q3

REPORT INFORMATION
  Report Type: Spontaneous
  Country: US (occurrence: US)
  Receive Date: 20150916
  Receipt Date: 20150916
  Transmission Date: 20151125
  Serious: Yes (Other)
  Sender: FDA-Public Use
  Company Number: US-ELI_LILLY_AND_COMPANY-US200801004163

PATIENT
  Age: 59 Year
  Sex: Female
  Weight: 58.5 kg

DRUGS (6)
  1. FORTEO [Suspect]
     Active Substance: TERIPARATIDE
     Indication: OSTEOPENIA
     Dosage: UNK, UNK
     Dates: start: 200708
  2. ZETIA [Concomitant]
     Active Substance: EZETIMIBE
  3. TRICOR [Concomitant]
     Active Substance: FENOFIBRATE
  4. LIPITOR [Concomitant]
     Active Substance: ATORVASTATIN CALCIUM
  5. ALOPURINOL [Concomitant]
     Active Substance: ALLOPURINOL
  6. SYNTHROID [Concomitant]
     Active Substance: LEVOTHYROXINE SODIUM

REACTIONS (8)
  - Dizziness [Unknown]
  - Nausea [Not Recovered/Not Resolved]
  - Tachycardia [Not Recovered/Not Resolved]
  - Hypotension [Recovered/Resolved]
  - Limb discomfort [Not Recovered/Not Resolved]
  - Syncope [Recovered/Resolved]
  - Palpitations [Unknown]
  - Diarrhoea [Recovered/Resolved]

NARRATIVE: CASE EVENT DATE: 20071221
